FAERS Safety Report 5360060-0 (Version None)
Quarter: 2007Q2

REPORT INFORMATION
  Report Type: 
  Country: None (occurrence: None)
  Receive Date: 20070618
  Receipt Date: 20060803
  Transmission Date: 20071010
  Serious: No
  Sender: FDA-Public Use
  Company Number: US-ASTRAZENECA-2006UW15613

PATIENT
  Age: 75 Year
  Sex: Female
  Weight: 60.3 kg

DRUGS (5)
  1. FASLODEX [Suspect]
     Indication: BREAST CANCER
     Route: 030
     Dates: start: 20060701
  2. COUMADIN [Concomitant]
     Indication: THROMBOSIS
  3. SYNTHROID [Concomitant]
  4. INDERAL [Concomitant]
     Indication: TREMOR
  5. HERCEPTIN [Concomitant]

REACTIONS (1)
  - EPISTAXIS [None]
